FAERS Safety Report 21462465 (Version 2)
Quarter: 2022Q4

REPORT INFORMATION
  Report Type: Report from Study
  Country: US (occurrence: US)
  Receive Date: 20221016
  Receipt Date: 20221022
  Transmission Date: 20230113
  Serious: Yes (Hospitalization, Other)
  Sender: FDA-Public Use
  Company Number: US-ABBVIE-22K-163-4397994-00

PATIENT
  Age: 64 Year
  Sex: Male
  Weight: 124.73 kg

DRUGS (19)
  1. HUMIRA [Suspect]
     Active Substance: ADALIMUMAB
     Indication: Psoriasis
     Dosage: CITRATE FREE
     Route: 058
  2. HUMIRA [Suspect]
     Active Substance: ADALIMUMAB
     Dosage: CITRATE FREE
     Route: 058
  3. ATORVASTATIN [Concomitant]
     Active Substance: ATORVASTATIN
     Indication: Product used for unknown indication
     Dosage: 1 TABLET BY ORAL ROUTE 2 TIMES EVERY DAY?20 MG TABLET
     Route: 048
  4. PFIZER-BIONTECH COVID-19 VACCINE [Concomitant]
     Active Substance: TOZINAMERAN
     Indication: COVID-19 immunisation
     Dosage: TIME INTERVAL: TOTAL: 1ST DOSE
     Route: 030
     Dates: start: 20210416, end: 20210416
  5. PFIZER-BIONTECH COVID-19 VACCINE [Concomitant]
     Active Substance: TOZINAMERAN
     Indication: COVID-19 immunisation
     Dosage: TIME INTERVAL: 1 TOTAL: 2ND DOSE
     Route: 030
     Dates: start: 20210514, end: 20210514
  6. PFIZER-BIONTECH COVID-19 VACCINE [Concomitant]
     Active Substance: TOZINAMERAN
     Indication: COVID-19 immunisation
     Dosage: TIME INTERVAL: 1 TOTAL: 3RD DOSE
     Route: 030
     Dates: start: 20211202, end: 20211202
  7. Tropi phen [Concomitant]
     Indication: Product used for unknown indication
     Dosage: 2.5%-1%
     Dates: start: 20220428
  8. ALPRAZOLAM [Concomitant]
     Active Substance: ALPRAZOLAM
     Indication: Product used for unknown indication
     Dosage: 1 TABLET BY ORAL ROUTE 3 TIMES EVERY DAY? 0.5 MG TABLET
     Route: 048
  9. PROPARACAINE [Concomitant]
     Active Substance: PROPARACAINE
     Indication: Product used for unknown indication
     Dates: start: 20220428
  10. PROPARACAINE [Concomitant]
     Active Substance: PROPARACAINE
     Indication: Product used for unknown indication
     Dates: start: 20220428
  11. TRAZODONE [Concomitant]
     Active Substance: TRAZODONE HYDROCHLORIDE
     Indication: Product used for unknown indication
     Dosage: 1 TABLET BY ORAL ROUTE 3 TIMES EVERY DAY AFTER MEALS?50 MG TABLET
     Route: 048
  12. LISINOPRIL [Concomitant]
     Active Substance: LISINOPRIL
     Indication: Product used for unknown indication
     Dosage: 1 TABLET BY ORAL ROUTE EVERY DAY?20 MG TABLET
     Route: 048
  13. SOOTHE XP [Concomitant]
     Active Substance: LIGHT MINERAL OIL\MINERAL OIL
     Indication: Product used for unknown indication
     Dosage: INSTILL 1 DROP BY OPHTHALMIC ROUTE 4 TIMES EVERY DAY?1 %-4.5 % EYE DROPS
     Route: 047
  14. IBUPROFEN [Concomitant]
     Active Substance: IBUPROFEN
     Indication: Product used for unknown indication
     Dosage: 1 TABLET BY ORAL ROUTE 3 TIMES EVERY DAY WITH FOOD?800 MG TABLET
     Route: 048
  15. aspirin 81 mg tablet [Concomitant]
     Indication: Product used for unknown indication
     Dosage: 1 TABLET BY ORAL ROUTE EVERY DAY?DELAYED RELEASE
     Route: 048
  16. DICYCLOMINE [Concomitant]
     Active Substance: DICYCLOMINE HYDROCHLORIDE
     Indication: Product used for unknown indication
     Dosage: 1 TABLET BY ORAL ROUTE 4 TIMES EVERY DAY?20 MG TABLET
     Route: 048
  17. METFORMIN [Concomitant]
     Active Substance: METFORMIN HYDROCHLORIDE
     Indication: Product used for unknown indication
     Dosage: 1 TABLET BY ORAL ROUTE 2 TIMES EVERY DAY WITH MORNING AND EVENING MEALS?500 MG TABLET
     Route: 048
  18. HUMIRA [Concomitant]
     Active Substance: ADALIMUMAB
     Indication: Product used for unknown indication
     Dosage: INJECT 0.8 MILLILITER BY SUBCUTANEOUS ROUTE EVERY 2 WEEKS IN THE ABDOMEN OR THIGH (ROTATE SITES)?...
     Route: 058
  19. TYLENOL [Concomitant]
     Active Substance: ACETAMINOPHEN
     Indication: Product used for unknown indication
     Dosage: EYE DROPS

REACTIONS (2)
  - Rhegmatogenous retinal detachment [Unknown]
  - Retinal tear [Recovering/Resolving]

NARRATIVE: CASE EVENT DATE: 20220502
